FAERS Safety Report 23259619 (Version 1)
Quarter: 2023Q4

REPORT INFORMATION
  Report Type: Spontaneous
  Country: US (occurrence: None)
  Receive Date: 20231204
  Receipt Date: 20231204
  Transmission Date: 20240110
  Serious: Yes (Hospitalization)
  Sender: FDA-Public Use
  Company Number: None

PATIENT
  Age: 65 Year
  Sex: Male

DRUGS (1)
  1. LISINOPRIL [Suspect]
     Active Substance: LISINOPRIL
     Dates: start: 20230130, end: 20231105

REACTIONS (3)
  - Angioedema [None]
  - Transfusion [None]
  - Drug hypersensitivity [None]

NARRATIVE: CASE EVENT DATE: 20231103
